FAERS Safety Report 7807095-3 (Version None)
Quarter: 2011Q4

REPORT INFORMATION
  Report Type: 
  Country: None (occurrence: None)
  Receive Date: 20111011
  Receipt Date: 20110930
  Transmission Date: 20120403
  Serious: Yes (Hospitalization, Other)
  Sender: FDA-Public Use
  Company Number: PHFR2011GB05244

PATIENT
  Sex: Male

DRUGS (2)
  1. HALOPERIDOL [Suspect]
  2. CLOZAPINE [Suspect]
     Indication: SCHIZOPHRENIA
     Route: 048
     Dates: start: 20010319, end: 20110913

REACTIONS (7)
  - NEUROLEPTIC MALIGNANT SYNDROME [None]
  - WHITE BLOOD CELL COUNT DECREASED [None]
  - INFECTION [None]
  - SKIN ULCER [None]
  - CONVULSION [None]
  - PLATELET COUNT DECREASED [None]
  - EXTRAPYRAMIDAL DISORDER [None]
